FAERS Safety Report 4924834-X (Version None)
Quarter: 2006Q1

REPORT INFORMATION
  Report Type: 
  Country: None (occurrence: None)
  Receive Date: 20060222
  Receipt Date: 20060203
  Transmission Date: 20060701
  Serious: Yes (Life-Threatening, Hospitalization)
  Sender: FDA-Public Use
  Company Number: 2006SP000613

PATIENT
  Age: 40 Year
  Sex: Female

DRUGS (2)
  1. LUNESTA [Suspect]
     Dosage: 87 MG
     Dates: start: 20060101
  2. HYDROCODONE [Suspect]
     Dosage: 5 MG
     Dates: start: 20060101

REACTIONS (2)
  - COMA [None]
  - OVERDOSE [None]
